FAERS Safety Report 24433921 (Version 1)
Quarter: 2024Q4

REPORT INFORMATION
  Report Type: Spontaneous
  Country: DE (occurrence: DE)
  Receive Date: 20241014
  Receipt Date: 20241014
  Transmission Date: 20250115
  Serious: Yes (Other)
  Sender: FRESENIUS KABI
  Company Number: DE-002147023-NVSC2024DE079258

PATIENT
  Sex: Female

DRUGS (3)
  1. FULVESTRANT [Suspect]
     Active Substance: FULVESTRANT
     Indication: Hormone receptor positive HER2 negative breast cancer
     Dosage: 500 MG, Q4W (DAILY DOSE)?FORM OF ADMIN - UNKNOWN
     Route: 030
     Dates: start: 20220824
  2. RIBOCICLIB [Suspect]
     Active Substance: RIBOCICLIB
     Indication: Hormone receptor positive HER2 negative breast cancer
     Dosage: 600 MG, QD  (DAILY DOSE, SCHEMA 21 DAYS INTAKE, 7 DAYS PAUSE)?FOA - UNKNOWN
     Route: 048
     Dates: start: 20220824, end: 20221214
  3. RIBOCICLIB [Suspect]
     Active Substance: RIBOCICLIB
     Dosage: 600 MG, QD  (DAILY DOSE, SCHEMA 21 DAYS INTAKE, 7 DAYS PAUSE)?FOA - UNKNOWN
     Route: 048
     Dates: start: 20221222

REACTIONS (2)
  - Tumour marker increased [Not Recovered/Not Resolved]
  - Carcinoembryonic antigen increased [Not Recovered/Not Resolved]

NARRATIVE: CASE EVENT DATE: 20230927
